FAERS Safety Report 9234662 (Version 1)
Quarter: 2013Q2

REPORT INFORMATION
  Report Type: Spontaneous
  Country: US (occurrence: US)
  Receive Date: 20130416
  Receipt Date: 20130416
  Transmission Date: 20140414
  Serious: Yes (Other)
  Sender: FDA-Public Use
  Company Number: US-BAYER-2013-047827

PATIENT
  Age: 75 Year
  Sex: Female
  Weight: 73 kg

DRUGS (8)
  1. ALEVE CAPLET [Suspect]
     Indication: PAIN
  2. ACETYLSALICYLIC ACID [Suspect]
     Indication: PAIN
  3. CELEBREX [Suspect]
     Indication: RHEUMATOID ARTHRITIS
     Dosage: 200 MG
  4. MELOXICAM [Suspect]
     Indication: ARTHROPATHY
     Dosage: 7.5 MG DAILY
  5. MELOXICAM [Suspect]
     Indication: ARTHRALGIA
  6. DICLOFENAC SODIUM [Suspect]
     Indication: ARTHROPATHY
     Dosage: 75 MG, BID
  7. DICLOFENAC SODIUM [Suspect]
     Indication: ARTHRALGIA
  8. ETODOLAC [Suspect]
     Indication: PAIN
     Dosage: 400 MG, UNK

REACTIONS (2)
  - Rheumatoid arthritis [None]
  - Drug ineffective [None]
